FAERS Safety Report 7170996-6 (Version None)
Quarter: 2010Q4

REPORT INFORMATION
  Report Type: 
  Country: None (occurrence: None)
  Receive Date: 20101217
  Receipt Date: 20101206
  Transmission Date: 20110411
  Serious: Yes (Hospitalization)
  Sender: FDA-Public Use
  Company Number: US-ELI_LILLY_AND_COMPANY-US201012001640

PATIENT
  Sex: Male
  Weight: 98.1 kg

DRUGS (12)
  1. CETUXIMAB [Suspect]
     Indication: NON-SMALL CELL LUNG CANCER
     Dosage: 540 MG, UNK
     Dates: start: 20101001
  2. GEMCITABINE HCL [Suspect]
     Indication: NON-SMALL CELL LUNG CANCER
     Dosage: 1620 MG, UNK
     Dates: start: 20101001
  3. CARBOPLATIN [Suspect]
     Indication: NON-SMALL CELL LUNG CANCER
     Dosage: 540 MG, UNK
     Dates: start: 20101001
  4. ASPIRIN [Concomitant]
     Dosage: 81 MG, DAILY (1/D)
  5. PRAVASTATIN [Concomitant]
     Dosage: 10 MG, EACH EVENING
  6. METOPROLOL [Concomitant]
     Dosage: 12.5 MG, DAILY (1/D)
  7. PEPCID [Concomitant]
     Dosage: 20 MG, UNK
  8. TRAMADOL HCL [Concomitant]
     Dosage: UNK, AS NEEDED
  9. SYMBICORT [Concomitant]
     Dosage: 1 D/F, UNK
     Route: 045
  10. DOXYCYCLINE [Concomitant]
     Dosage: 100 MG, DAILY (1/D)
  11. BENADRYL [Concomitant]
     Dosage: 25 MG, OTHER
  12. LORAZEPAM [Concomitant]
     Dosage: 1 MG, OTHER

REACTIONS (2)
  - ASTHENIA [None]
  - FATIGUE [None]
